FAERS Safety Report 19254415 (Version 2)
Quarter: 2021Q2

REPORT INFORMATION
  Report Type: Report from Study
  Country: CN (occurrence: CN)
  Receive Date: 20210513
  Receipt Date: 20210603
  Transmission Date: 20210717
  Serious: Yes (Hospitalization)
  Sender: FDA-Public Use
  Company Number: CN-PFIZER INC-2021509930

PATIENT
  Age: 56 Year
  Sex: Female
  Weight: 63.5 kg

DRUGS (27)
  1. BUDESONIDE. [Concomitant]
     Active Substance: BUDESONIDE
     Dosage: UNK, INHALATION SOLUTION
     Dates: start: 20210420, end: 20210422
  2. GOSERELIN [Suspect]
     Active Substance: GOSERELIN
     Dosage: 3.6 MG, MONTHLY (1/M) (GEL FOR INJECTION)
     Route: 058
     Dates: start: 20201201
  3. POTASSIUM CHLORIDE. [Concomitant]
     Active Substance: POTASSIUM CHLORIDE
     Indication: HYPOKALAEMIA
     Dosage: UNK
     Dates: start: 20210303, end: 20210424
  4. INSULIN DEGLUDEC [Concomitant]
     Active Substance: INSULIN DEGLUDEC
     Indication: PROPHYLAXIS
  5. IPRATROPIUM BROMIDE. [Concomitant]
     Active Substance: IPRATROPIUM BROMIDE
     Dosage: UNK, INHALATION SOLUTION
     Dates: start: 20210420, end: 20210424
  6. STRUCTURAL FAT EMULSION INJECTION (C6?24) [Concomitant]
     Dosage: UNK
     Dates: start: 20210420, end: 20210422
  7. HYDROTALCITE [Concomitant]
     Active Substance: HYDROTALCITE
     Dosage: UNK
     Dates: start: 20210422, end: 20210424
  8. TICAGRELOR. [Concomitant]
     Active Substance: TICAGRELOR
     Dosage: UNK
     Dates: start: 20210118
  9. LEUCOGEN [Concomitant]
     Active Substance: LEUCOGEN
     Indication: WHITE BLOOD CELL COUNT DECREASED
     Dosage: UNK
     Dates: start: 20210303, end: 20210416
  10. VITAMIN B6 [Concomitant]
     Active Substance: PYRIDOXINE HYDROCHLORIDE
     Dosage: UNK
     Dates: start: 20210420, end: 20210424
  11. VITAMIN C [Concomitant]
     Active Substance: ASCORBIC ACID
     Dosage: UNK
     Dates: start: 20210420, end: 20210424
  12. INSULIN DEGLUDEC [Concomitant]
     Active Substance: INSULIN DEGLUDEC
     Indication: HYPERGLYCAEMIA
     Dosage: UNK
     Dates: start: 20210420, end: 20210424
  13. ALANYL GLUTAMINE [Concomitant]
     Active Substance: ALANYL GLUTAMINE
     Dosage: UNK
     Dates: start: 20210420, end: 20210422
  14. EXEMESTANE. [Suspect]
     Active Substance: EXEMESTANE
     Indication: INVASIVE DUCTAL BREAST CARCINOMA
     Dosage: 25 MG, DAILY
     Route: 048
     Dates: start: 20190424
  15. EXEMESTANE. [Suspect]
     Active Substance: EXEMESTANE
     Dosage: 25 MG, DAILY
     Route: 048
     Dates: start: 20210210
  16. ABEMACICLIB [Suspect]
     Active Substance: ABEMACICLIB
     Dosage: 100 MG, 2X/DAY
     Route: 048
     Dates: start: 20210210
  17. CALCIUM CARBONATE/VITAMIN D3 [Concomitant]
     Active Substance: CALCIUM CARBONATE\CHOLECALCIFEROL
     Dosage: UNK
     Dates: start: 20190429
  18. ABEMACICLIB [Suspect]
     Active Substance: ABEMACICLIB
     Indication: INVASIVE DUCTAL BREAST CARCINOMA
     Dosage: 150 MG, 2X/DAY
     Route: 048
     Dates: start: 20190424
  19. FURSULTIAMINE [Concomitant]
     Active Substance: FURSULTIAMINE
     Dosage: UNK
     Dates: start: 20210118, end: 20210416
  20. NIMODIPINE. [Concomitant]
     Active Substance: NIMODIPINE
     Dosage: UNK
     Dates: start: 20210118, end: 20210416
  21. PANTOPRAZOLE [Concomitant]
     Active Substance: PANTOPRAZOLE
     Indication: PROPHYLAXIS
     Dosage: UNK
     Dates: start: 20210422
  22. MECOBALAMIN [Concomitant]
     Active Substance: METHYLCOBALAMIN
     Dosage: UNK
     Dates: start: 20210118, end: 20210416
  23. CILOSTAZOL. [Concomitant]
     Active Substance: CILOSTAZOL
     Dosage: UNK
     Dates: start: 20210118
  24. COMPOUND AMINO ACID (9AA) [CYSTEINE HYDROCHLORIDE;HISTIDINE;ISOLEUCINE [Concomitant]
  25. GOSERELIN [Suspect]
     Active Substance: GOSERELIN
     Indication: INVASIVE DUCTAL BREAST CARCINOMA
     Dosage: 3.6 MG, MONTHLY (1/M) (GEL FOR INJECTION)
     Route: 058
     Dates: start: 20190425
  26. LEUPRORELIN ACETATE [Suspect]
     Active Substance: LEUPROLIDE ACETATE
     Indication: INVASIVE DUCTAL BREAST CARCINOMA
     Dosage: 11.2 MG, EVERY TWELVE WEEKS (SOLUTION FOR INJECTION)
     Route: 058
     Dates: start: 20191009, end: 20200911
  27. TIROFIBAN HYDROCHLORIDE. [Concomitant]
     Active Substance: TIROFIBAN HYDROCHLORIDE
     Dosage: UNK
     Dates: start: 20210420, end: 20210421

REACTIONS (2)
  - Anaphylactic reaction [Recovered/Resolved]
  - Intracranial aneurysm [Recovered/Resolved]

NARRATIVE: CASE EVENT DATE: 20210420
